FAERS Safety Report 8224574-8 (Version None)
Quarter: 2012Q1

REPORT INFORMATION
  Report Type: 
  Country: None (occurrence: None)
  Receive Date: 20120321
  Receipt Date: 20120309
  Transmission Date: 20120608
  Serious: Yes (Other)
  Sender: FDA-Public Use
  Company Number: US-ELI_LILLY_AND_COMPANY-US201203004433

PATIENT
  Sex: Female

DRUGS (3)
  1. CYMBALTA [Suspect]
     Dosage: UNK, UNKNOWN
  2. CYMBALTA [Suspect]
     Dosage: 20 MG, UNK
  3. CYMBALTA [Suspect]
     Dosage: 60 MG, UNK

REACTIONS (2)
  - DERMATITIS EXFOLIATIVE [None]
  - STEVENS-JOHNSON SYNDROME [None]
